FAERS Safety Report 13658840 (Version 1)
Quarter: 2017Q2

REPORT INFORMATION
  Report Type: Report from Study
  Country: JP (occurrence: JP)
  Receive Date: 20170616
  Receipt Date: 20170616
  Transmission Date: 20170830
  Serious: Yes (Other)
  Sender: FDA-Public Use
  Company Number: JP-ACCORD-052476

PATIENT
  Age: 66 Year
  Sex: Male

DRUGS (2)
  1. ALLOPURINOL. [Suspect]
     Active Substance: ALLOPURINOL
     Indication: GOUT
  2. OXIPURINOL [Suspect]
     Active Substance: OXYPURINOL
     Indication: GOUT

REACTIONS (1)
  - Drug reaction with eosinophilia and systemic symptoms [Unknown]
